FAERS Safety Report 8815288 (Version 1)
Quarter: 2012Q4

REPORT INFORMATION
  Report Type: 
  Country: DE (occurrence: DE)
  Receive Date: 20120928
  Receipt Date: 20120928
  Transmission Date: 20130627
  Serious: Yes (Other)
  Sender: FDA-Public Use
  Company Number: DE-UCBSA-067425

PATIENT
  Age: 40 Year
  Sex: Female

DRUGS (1)
  1. KEPPRA [Suspect]
     Dosage: TOTAL DAILY DOSE:1000 MG
     Dates: start: 201108, end: 2012

REACTIONS (5)
  - Premature delivery [Unknown]
  - Caesarean section [Unknown]
  - Depression [Recovered/Resolved]
  - Suicidal ideation [Recovered/Resolved]
  - Pregnancy [Recovered/Resolved]
